FAERS Safety Report 7712500-7 (Version None)
Quarter: 2011Q3

REPORT INFORMATION
  Report Type: 
  Country: None (occurrence: None)
  Receive Date: 20110826
  Receipt Date: 20110826
  Transmission Date: 20111222
  Serious: Yes (Hospitalization)
  Sender: FDA-Public Use
  Company Number: None

PATIENT
  Age: 52 Year
  Sex: Male
  Weight: 81.646 kg

DRUGS (1)
  1. ZONISAMIDE [Suspect]
     Indication: INSOMNIA
     Dosage: ONE CAPSLE
     Route: 048
     Dates: start: 20110824, end: 20110825

REACTIONS (8)
  - VOMITING [None]
  - RASH GENERALISED [None]
  - HEADACHE [None]
  - CHEST PAIN [None]
  - OXYGEN SATURATION DECREASED [None]
  - DYSPNOEA [None]
  - PHARYNGEAL ERYTHEMA [None]
  - DEHYDRATION [None]
